FAERS Safety Report 18072486 (Version 1)
Quarter: 2020Q3

REPORT INFORMATION
  Report Type: Spontaneous
  Country: CN (occurrence: CN)
  Receive Date: 20200727
  Receipt Date: 20200727
  Transmission Date: 20201103
  Serious: Yes (Death, Life-Threatening, Hospitalization, Other)
  Sender: FDA-Public Use
  Company Number: CN-ACCORD-193082

PATIENT
  Age: 46 Year
  Sex: Male

DRUGS (1)
  1. IRINOTECAN [Suspect]
     Active Substance: IRINOTECAN
     Indication: GLIOBLASTOMA MULTIFORME

REACTIONS (4)
  - Drug intolerance [Unknown]
  - Diarrhoea [Unknown]
  - Myelosuppression [Unknown]
  - Pyrexia [Unknown]
